FAERS Safety Report 23371845 (Version 2)
Quarter: 2024Q1

REPORT INFORMATION
  Report Type: Spontaneous
  Country: DE (occurrence: DE)
  Receive Date: 20240105
  Receipt Date: 20240125
  Transmission Date: 20240409
  Serious: No
  Sender: FDA-Public Use
  Company Number: DE-002147023-NVSC2024DE001325

PATIENT
  Sex: Female
  Weight: 60 kg

DRUGS (3)
  1. KESIMPTA [Suspect]
     Active Substance: OFATUMUMAB
     Indication: Multiple sclerosis
     Dosage: 20 MG (EVERY 28 DAYS)
     Route: 065
     Dates: start: 20220201
  2. KESIMPTA [Suspect]
     Active Substance: OFATUMUMAB
     Indication: Encephalomyelitis
  3. SPASMEX [Concomitant]
     Indication: Product used for unknown indication
     Route: 065

REACTIONS (1)
  - Ichthyosis acquired [Recovering/Resolving]

NARRATIVE: CASE EVENT DATE: 20230501
